FAERS Safety Report 6703271-1 (Version None)
Quarter: 2010Q2

REPORT INFORMATION
  Report Type: 
  Country: None (occurrence: None)
  Receive Date: 20100430
  Receipt Date: 20100421
  Transmission Date: 20101027
  Serious: Yes (Hospitalization)
  Sender: FDA-Public Use
  Company Number: US-ASTRAZENECA-2010SE17701

PATIENT
  Age: 48 Year
  Sex: Male
  Weight: 83.9 kg

DRUGS (9)
  1. SEROQUEL [Suspect]
     Indication: DEPRESSION
     Route: 048
     Dates: start: 20080901, end: 20091101
  2. SEROQUEL [Suspect]
     Indication: BIPOLAR DISORDER
     Route: 048
     Dates: start: 20080901, end: 20091101
  3. SEROQUEL [Suspect]
     Route: 048
     Dates: start: 20091201, end: 20100301
  4. SEROQUEL [Suspect]
     Route: 048
     Dates: start: 20091201, end: 20100301
  5. LAMICTAL [Concomitant]
     Indication: DEPRESSION
     Dates: start: 20091101, end: 20091201
  6. LAMICTAL [Concomitant]
     Indication: BIPOLAR DISORDER
     Dates: start: 20091101, end: 20091201
  7. DILANTIN [Concomitant]
  8. RISPERDAL [Concomitant]
  9. ZOLOFT [Concomitant]

REACTIONS (12)
  - AMNESIA [None]
  - GRAND MAL CONVULSION [None]
  - HALLUCINATION [None]
  - HEAD INJURY [None]
  - KIDNEY INFECTION [None]
  - PETIT MAL EPILEPSY [None]
  - PNEUMONIA [None]
  - PYREXIA [None]
  - RENAL FAILURE [None]
  - TREMOR [None]
  - WALKING AID USER [None]
  - WHITE BLOOD CELL COUNT DECREASED [None]
